FAERS Safety Report 7098656-0 (Version None)
Quarter: 2010Q4

REPORT INFORMATION
  Report Type: 
  Country: None (occurrence: None)
  Receive Date: 20101112
  Receipt Date: 20101102
  Transmission Date: 20110411
  Serious: Yes (Other)
  Sender: FDA-Public Use
  Company Number: US-JNJFOC-20101102504

PATIENT
  Sex: Female
  Weight: 49.44 kg

DRUGS (2)
  1. FENTANYL-100 [Suspect]
     Indication: BACK PAIN
     Route: 062
  2. FIORICET [Concomitant]
     Indication: MIGRAINE
     Dosage: AS NEEDED
     Route: 048

REACTIONS (1)
  - OVARIAN RUPTURE [None]
